FAERS Safety Report 10058189 (Version 1)
Quarter: 2014Q2

REPORT INFORMATION
  Report Type: Spontaneous
  Country: US (occurrence: None)
  Receive Date: 20140403
  Receipt Date: 20140403
  Transmission Date: 20141212
  Serious: Yes (Hospitalization)
  Sender: FDA-Public Use
  Company Number: None

PATIENT
  Age: 75 Year
  Sex: Male
  Weight: 125.2 kg

DRUGS (2)
  1. FENTANYL 50 MCG/HR UNKNOWN [Suspect]
     Indication: PAIN
     Route: 061
     Dates: start: 20130415, end: 20140101
  2. TRAMADOL 50MG [Suspect]
     Indication: PAIN
     Route: 048
     Dates: start: 20131002

REACTIONS (6)
  - Confusional state [None]
  - Muscular weakness [None]
  - Respiratory failure [None]
  - Mental status changes [None]
  - Sedation [None]
  - Somnolence [None]
